FAERS Safety Report 6686819-5 (Version None)
Quarter: 2010Q2

REPORT INFORMATION
  Report Type: 
  Country: None (occurrence: None)
  Receive Date: 20100414
  Receipt Date: 20100401
  Transmission Date: 20101027
  Serious: Yes (Other)
  Sender: FDA-Public Use
  Company Number: 2010AP000276

PATIENT
  Age: 20 Year
  Sex: Female

DRUGS (5)
  1. CITALOPRAM HYDROBROMIDE [Suspect]
     Indication: OBSESSIVE-COMPULSIVE DISORDER
     Dosage: 10 MG, QD
     Dates: start: 20091205
  2. CLOZARIL [Suspect]
     Indication: SCHIZOPHRENIA
     Dosage: 300MG;QD, 275 MG;QD
     Dates: start: 20030401
  3. CLOZARIL [Suspect]
     Indication: SCHIZOPHRENIA
     Dosage: 300MG;QD, 275 MG;QD
     Dates: start: 20100115
  4. DOCUSATE SODIUM (DOCUSATE SODIUM) [Concomitant]
  5. LANSOPRAZOLE [Concomitant]

REACTIONS (7)
  - ANTIPSYCHOTIC DRUG LEVEL INCREASED [None]
  - ANXIETY [None]
  - DRUG INTERACTION [None]
  - HYPOCHONDRIASIS [None]
  - IMPULSIVE BEHAVIOUR [None]
  - OBSESSIVE-COMPULSIVE DISORDER [None]
  - REPETITIVE SPEECH [None]
